FAERS Safety Report 8923866 (Version 1)
Quarter: 2012Q4

REPORT INFORMATION
  Report Type: Report from Study
  Country: US (occurrence: US)
  Receive Date: 20121126
  Receipt Date: 20121126
  Transmission Date: 20130627
  Serious: Yes (Other)
  Sender: FDA-Public Use
  Company Number: US-PURDUE-USA-2012-0096163

PATIENT
  Age: 51 Year
  Sex: Male

DRUGS (1)
  1. OXYCONTIN (NDA 22-272) [Suspect]
     Indication: PAIN
     Dosage: 80 mg, tid
     Route: 048

REACTIONS (4)
  - Tooth extraction [Unknown]
  - Mood altered [Unknown]
  - Nausea [Unknown]
  - Vomiting [Unknown]
